FAERS Safety Report 13007022 (Version 2)
Quarter: 2017Q2

REPORT INFORMATION
  Report Type: Spontaneous
  Country: US (occurrence: US)
  Receive Date: 20161207
  Receipt Date: 20170612
  Transmission Date: 20170830
  Serious: Yes (Other)
  Sender: FDA-Public Use
  Company Number: US-CELGENEUS-USA-2016117728

PATIENT

DRUGS (4)
  1. VIDAZA [Suspect]
     Active Substance: AZACITIDINE
     Indication: MYELODYSPLASTIC SYNDROME
     Dosage: 75 MG/M^2
     Route: 041
  2. NIVOLUMAB [Suspect]
     Active Substance: NIVOLUMAB
     Indication: MYELODYSPLASTIC SYNDROME
     Dosage: 3 MG/KG
     Route: 041
  3. IPILIMUMAB [Suspect]
     Active Substance: IPILIMUMAB
     Dosage: 3 MG/KG
     Route: 041
  4. IPILIMUMAB [Suspect]
     Active Substance: IPILIMUMAB
     Indication: MYELODYSPLASTIC SYNDROME
     Dosage: 3 MG/KG
     Route: 041

REACTIONS (27)
  - Oedema [Unknown]
  - Gastrooesophageal reflux disease [Unknown]
  - Hypomagnesaemia [Unknown]
  - Fatigue [Unknown]
  - Therapy non-responder [Unknown]
  - Aspartate aminotransferase increased [Unknown]
  - Lung infection [Unknown]
  - Arthralgia [Unknown]
  - Dyspnoea [Unknown]
  - Nausea [Unknown]
  - Weight decreased [Unknown]
  - Pneumonitis [Unknown]
  - Decreased appetite [Unknown]
  - Hyperglycaemia [Unknown]
  - Hyperkalaemia [Unknown]
  - Insomnia [Unknown]
  - Cough [Unknown]
  - Acute myeloid leukaemia [Unknown]
  - Pyrexia [Unknown]
  - Hyponatraemia [Unknown]
  - Stomatitis [Unknown]
  - Constipation [Unknown]
  - Diarrhoea [Unknown]
  - Hypotension [Unknown]
  - Rash maculo-papular [Unknown]
  - Rhinorrhoea [Unknown]
  - Abdominal pain upper [Unknown]
